FAERS Safety Report 16701473 (Version 2)
Quarter: 2019Q3

REPORT INFORMATION
  Report Type: Spontaneous
  Country: US (occurrence: US)
  Receive Date: 20190814
  Receipt Date: 20190902
  Transmission Date: 20191004
  Serious: Yes (Hospitalization, Other)
  Sender: FDA-Public Use
  Company Number: US-PFIZER INC-2019344387

PATIENT
  Age: 55 Year
  Sex: Female
  Weight: 63.5 kg

DRUGS (6)
  1. GLIPIZIDE. [Concomitant]
     Active Substance: GLIPIZIDE
     Dosage: UNK
  2. SIMVASTATIN. [Concomitant]
     Active Substance: SIMVASTATIN
     Dosage: UNK
  3. METFORMIN [Concomitant]
     Active Substance: METFORMIN HYDROCHLORIDE
     Dosage: UNK
  4. LYRICA [Suspect]
     Active Substance: PREGABALIN
     Indication: DEMYELINATING POLYNEUROPATHY
     Dosage: 100 MG, 2X/DAY
     Route: 048
     Dates: start: 1997
  5. SYNTHROID [Concomitant]
     Active Substance: LEVOTHYROXINE SODIUM
     Dosage: UNK
  6. DONEPEZIL. [Concomitant]
     Active Substance: DONEPEZIL
     Dosage: UNK

REACTIONS (6)
  - Diabetes mellitus [Not Recovered/Not Resolved]
  - Hypoacusis [Not Recovered/Not Resolved]
  - Off label use [Unknown]
  - Hypoaesthesia [Not Recovered/Not Resolved]
  - Product use in unapproved indication [Unknown]
  - Drug dependence [Not Recovered/Not Resolved]

NARRATIVE: CASE EVENT DATE: 1997
